FAERS Safety Report 9882423 (Version 1)
Quarter: 2014Q1

REPORT INFORMATION
  Report Type: Spontaneous
  Country: US (occurrence: US)
  Receive Date: 20140207
  Receipt Date: 20140207
  Transmission Date: 20141002
  Serious: No
  Sender: FDA-Public Use
  Company Number: US-BAYER-2014-019807

PATIENT
  Sex: Female

DRUGS (1)
  1. MENOSTAR [Suspect]
     Dosage: UNK UNK, CONT
     Route: 062

REACTIONS (1)
  - Vaginal haemorrhage [None]
